FAERS Safety Report 19999301 (Version 1)
Quarter: 2021Q4

REPORT INFORMATION
  Report Type: Spontaneous
  Country: US (occurrence: US)
  Receive Date: 20211027
  Receipt Date: 20211027
  Transmission Date: 20220303
  Serious: No
  Sender: FDA-Public Use
  Company Number: US-UNITED THERAPEUTICS-UNT-2021-021590

PATIENT
  Sex: Female
  Weight: 45.81 kg

DRUGS (2)
  1. TYVASO [Suspect]
     Active Substance: TREPROSTINIL
     Indication: Pulmonary arterial hypertension
     Dosage: UNK
     Dates: start: 20151217
  2. TYVASO [Suspect]
     Active Substance: TREPROSTINIL
     Dosage: 90-108 ?G, QID

REACTIONS (2)
  - Amnesia [Unknown]
  - Off label use [Unknown]
